FAERS Safety Report 4953663-6 (Version None)
Quarter: 2006Q1

REPORT INFORMATION
  Report Type: 
  Country: None (occurrence: None)
  Receive Date: 20060324
  Receipt Date: 20060315
  Transmission Date: 20060701
  Serious: Yes (Death, Hospitalization)
  Sender: FDA-Public Use
  Company Number: US-MERCK-0603USA02694

PATIENT
  Age: 67 Year
  Sex: Female
  Weight: 50 kg

DRUGS (7)
  1. VIOXX [Suspect]
     Indication: ARTHRITIS
     Route: 048
     Dates: start: 19990101, end: 20010101
  2. PREDNISONE [Concomitant]
     Route: 065
  3. LIPITOR [Concomitant]
     Route: 065
  4. CIPRO [Concomitant]
     Route: 065
  5. IBUPROFEN [Concomitant]
     Route: 065
  6. METHOTREXATE [Concomitant]
     Route: 065
  7. SPORANOX [Concomitant]
     Route: 065

REACTIONS (3)
  - CARDIAC ARREST [None]
  - LOCALISED INFECTION [None]
  - MYOCARDIAL INFARCTION [None]
